FAERS Safety Report 8383183-0 (Version None)
Quarter: 2012Q2

REPORT INFORMATION
  Report Type: 
  Country: None (occurrence: None)
  Receive Date: 20120524
  Receipt Date: 20120516
  Transmission Date: 20120825
  Serious: Yes (Other)
  Sender: FDA-Public Use
  Company Number: US-BRISTOL-MYERS SQUIBB COMPANY-16599029

PATIENT
  Sex: Female

DRUGS (1)
  1. ORENCIA [Suspect]
     Dosage: NO OF INJ:3, ONCE WEEKLY FOR FIRST 3 MONTHS.
     Route: 058

REACTIONS (2)
  - APPENDICITIS [None]
  - BLOOD GLUCOSE INCREASED [None]
